FAERS Safety Report 12630431 (Version 1)
Quarter: 2016Q3

REPORT INFORMATION
  Report Type: Spontaneous
  Country: US (occurrence: US)
  Receive Date: 20160808
  Receipt Date: 20160808
  Transmission Date: 20161109
  Serious: Yes (Other)
  Sender: FDA-Public Use
  Company Number: US-BAYER-2016-148671

PATIENT
  Sex: Male

DRUGS (1)
  1. NEXAVAR [Suspect]
     Active Substance: SORAFENIB
     Indication: HEPATOCELLULAR CARCINOMA
     Dosage: UNK
     Dates: end: 2016

REACTIONS (8)
  - Blood alkaline phosphatase increased [None]
  - Hepatic neoplasm [None]
  - Chest pain [None]
  - Fatigue [None]
  - Pulmonary mass [None]
  - Alpha 1 foetoprotein increased [None]
  - Metastases to lung [None]
  - Asthenia [None]
